FAERS Safety Report 5251144-6 (Version None)
Quarter: 2007Q1

REPORT INFORMATION
  Report Type: 
  Country: None (occurrence: None)
  Receive Date: 20070228
  Receipt Date: 20060901
  Transmission Date: 20070707
  Serious: No
  Sender: FDA-Public Use
  Company Number: US-GLAXOSMITHKLINE-A0618919A

PATIENT
  Age: 29 Year
  Sex: Female

DRUGS (4)
  1. LAMICTAL [Suspect]
     Indication: BIPOLAR DISORDER
     Dosage: 200MG TWICE PER DAY
     Route: 048
     Dates: start: 20060101
  2. SEROQUEL [Concomitant]
  3. KLONOPIN [Concomitant]
  4. CELEXA [Concomitant]

REACTIONS (3)
  - HALO VISION [None]
  - MYDRIASIS [None]
  - VISUAL DISTURBANCE [None]
